FAERS Safety Report 6105253-X (Version None)
Quarter: 2009Q1

REPORT INFORMATION
  Report Type: 
  Country: None (occurrence: None)
  Receive Date: 20090304
  Receipt Date: 20090217
  Transmission Date: 20090719
  Serious: Yes (Hospitalization)
  Sender: FDA-Public Use
  Company Number: KADN20090007

PATIENT
  Age: 48 Year
  Sex: Male

DRUGS (8)
  1. KADIAN [Suspect]
     Indication: PAIN
     Dosage: 30 MG, 1 IN 12 HR, ORAL
     Route: 048
  2. FENTANYL TRANSDERMAL SYSTEM [Suspect]
     Indication: PAIN
     Dosage: 100 MCG, 1 IN 3 D, TRANSDERMAL
     Route: 062
  3. PERCOCET [Concomitant]
  4. ELAVIL [Concomitant]
  5. ULTRAM [Concomitant]
  6. NEURONTIN [Concomitant]
  7. VASOTEC [Concomitant]
  8. MARIJUANA [Concomitant]

REACTIONS (4)
  - ABDOMINAL PAIN [None]
  - DRUG ABUSE [None]
  - DYSPEPSIA [None]
  - IMPAIRED GASTRIC EMPTYING [None]
